FAERS Safety Report 7835023-3 (Version None)
Quarter: 2011Q4

REPORT INFORMATION
  Report Type: 
  Country: None (occurrence: None)
  Receive Date: 20111024
  Receipt Date: 20111013
  Transmission Date: 20120403
  Serious: Yes (Death, Hospitalization)
  Sender: FDA-Public Use
  Company Number: GB-TEVA-305338ISR

PATIENT
  Sex: Female

DRUGS (9)
  1. FUROSEMIDE [Suspect]
     Dosage: 40 MILLIGRAM;
     Route: 048
     Dates: start: 20110228
  2. CALCIUM CARBONATE [Concomitant]
     Route: 048
  3. DILTIAZEM HCL [Concomitant]
     Route: 048
  4. VITAMIN D AND IRON [Concomitant]
     Route: 048
  5. CITALOPRAM [Concomitant]
     Route: 048
  6. LANTUS [Concomitant]
  7. FUROSEMIDE [Suspect]
     Dosage: 20 MILLIGRAM;
     Route: 048
     Dates: start: 20110225
  8. NOVOMIX [Concomitant]
  9. AMOXICILLIN AND CLAVULANATE POTASSIUM [Concomitant]

REACTIONS (8)
  - DEATH [None]
  - DYSKINESIA [None]
  - LOSS OF CONSCIOUSNESS [None]
  - CONFUSIONAL STATE [None]
  - GRUNTING [None]
  - ORAL CANDIDIASIS [None]
  - RESTLESSNESS [None]
  - DYSPNOEA [None]
